FAERS Safety Report 7323767-1 (Version None)
Quarter: 2011Q1

REPORT INFORMATION
  Report Type: 
  Country: None (occurrence: None)
  Receive Date: 20110217
  Receipt Date: 20110202
  Transmission Date: 20110831
  Serious: Yes (Hospitalization)
  Sender: FDA-Public Use
  Company Number: 1000018791

PATIENT
  Age: 81 Year
  Sex: Male

DRUGS (9)
  1. ACETAMINOPHEN AND TRAMADOL HCL [Suspect]
     Dosage: ORAL
     Route: 048
     Dates: start: 20101208, end: 20101216
  2. ESCITALOPRAM OXALATE [Suspect]
     Dosage: 2.5 MG (5 MG, 1 IN 2 D), ORAL
     Route: 048
     Dates: end: 20101216
  3. AVLOCARDYL (PROPRANOLOL) [Concomitant]
  4. FUROSEMIDE [Concomitant]
  5. PLAVIX [Concomitant]
  6. ZOLPIDEM [Suspect]
     Dosage: 10 MG (10 MG, 1 IN 1 D), ORAL
     Route: 048
     Dates: start: 20100101, end: 20101216
  7. DIFFU-K (POTASSIUM  CHLORIDE) [Concomitant]
  8. LYRICA [Suspect]
     Indication: PAIN
     Dosage: ORAL
     Route: 048
     Dates: start: 20100101, end: 20101216
  9. CONTRAMAL (CAPSULES) [Suspect]
     Dosage: 150 MG (50 MG, 3 IN 1 D)
     Dates: start: 20101230, end: 20110102

REACTIONS (3)
  - CONFUSIONAL STATE [None]
  - CONDITION AGGRAVATED [None]
  - HALLUCINATION, VISUAL [None]
